FAERS Safety Report 8235457-1 (Version None)
Quarter: 2012Q1

REPORT INFORMATION
  Report Type: 
  Country: None (occurrence: None)
  Receive Date: 20120326
  Receipt Date: 20120319
  Transmission Date: 20120608
  Serious: Yes (Other)
  Sender: FDA-Public Use
  Company Number: PHHO2012BR004559

PATIENT
  Sex: Female

DRUGS (3)
  1. MYFORTIC [Suspect]
     Indication: RENAL TRANSPLANT
     Dosage: 500 MG, BID
     Dates: start: 20110408
  2. BELATACEPT [Suspect]
     Indication: RENAL TRANSPLANT
     Dosage: 275 MG, UNK
     Route: 042
     Dates: start: 20070115
  3. PREDNISONE [Suspect]
     Indication: RENAL TRANSPLANT
     Dosage: 5 MG, QD
     Dates: start: 20110822

REACTIONS (1)
  - BASAL CELL CARCINOMA [None]
